FAERS Safety Report 7908722-2 (Version None)
Quarter: 2011Q4

REPORT INFORMATION
  Report Type: 
  Country: None (occurrence: None)
  Receive Date: 20111111
  Receipt Date: 20111103
  Transmission Date: 20120403
  Serious: Yes (Other)
  Sender: FDA-Public Use
  Company Number: US-SHIRE-ALL1-2011-04291

PATIENT
  Sex: Male
  Weight: 81.633 kg

DRUGS (5)
  1. DILANTIN [Suspect]
     Indication: EPILEPSY
     Dosage: 130 MG, 2X/DAY:BID(100MG AND 30MG MORNING AND AFTERNOON)
     Route: 048
     Dates: start: 19960401
  2. DILANTIN [Suspect]
     Dosage: 160 MG, (1X/DAY:QDIN EVENING 100MG AND TWO 30 MG)
     Route: 048
     Dates: start: 19960401
  3. CARBATROL [Suspect]
     Indication: EPILEPSY
     Dosage: UNK, UNKNOWN
     Route: 048
  4. MULTI-VITAMINS [Concomitant]
     Indication: SUPPLEMENTATION THERAPY
     Dosage: UNK, UNKNOWN
     Route: 065
  5. DILANTIN [Suspect]
     Dosage: UNK, UNKNOWN
     Route: 048

REACTIONS (4)
  - STEVENS-JOHNSON SYNDROME [None]
  - DRUG LEVEL BELOW THERAPEUTIC [None]
  - INFLUENZA LIKE ILLNESS [None]
  - CONVULSION [None]
